FAERS Safety Report 5578542-5 (Version None)
Quarter: 2007Q4

REPORT INFORMATION
  Report Type: 
  Country: None (occurrence: None)
  Receive Date: 20071231
  Receipt Date: 20071219
  Transmission Date: 20080405
  Serious: Yes (Other)
  Sender: FDA-Public Use
  Company Number: US-PFIZER INC-2007107345

PATIENT
  Sex: Female
  Weight: 68 kg

DRUGS (3)
  1. LYRICA [Suspect]
     Indication: NERVE INJURY
     Dates: start: 20070101, end: 20070101
  2. BETAPACE [Concomitant]
  3. NEXIUM [Concomitant]

REACTIONS (7)
  - APHASIA [None]
  - EYE SWELLING [None]
  - FEELING ABNORMAL [None]
  - HERPES ZOSTER [None]
  - PHARYNGEAL OEDEMA [None]
  - SWELLING FACE [None]
  - SWOLLEN TONGUE [None]
